FAERS Safety Report 7938565-5 (Version None)
Quarter: 2011Q4

REPORT INFORMATION
  Report Type: 
  Country: None (occurrence: None)
  Receive Date: 20111123
  Receipt Date: 20111114
  Transmission Date: 20120403
  Serious: Yes (Other)
  Sender: FDA-Public Use
  Company Number: US-ASTRAZENECA-2011SE62117

PATIENT
  Sex: Male
  Weight: 105.7 kg

DRUGS (26)
  1. LUVOX [Suspect]
     Route: 065
     Dates: start: 20100910
  2. FLUVOXAMINE MALEATE [Concomitant]
     Indication: OBSESSIVE-COMPULSIVE DISORDER
     Dosage: 100 DAILY
     Route: 048
     Dates: start: 20110813
  3. SEROQUEL [Suspect]
     Route: 048
     Dates: start: 20111030
  4. LUVOX [Suspect]
     Route: 065
     Dates: start: 20110509
  5. RESTORIL [Concomitant]
     Dosage: 30 MG AT NIGHT AS REQUIRED
     Route: 048
     Dates: start: 20110822
  6. KLONOPIN [Concomitant]
     Route: 048
     Dates: start: 20100813
  7. SEROQUEL [Suspect]
     Route: 048
     Dates: start: 20110214
  8. FLUVOXAMINE MALEATE [Concomitant]
     Route: 048
     Dates: start: 20111017
  9. FLUVOXAMINE MALEATE [Concomitant]
     Dosage: 100 MG, TWICE A DAY AM AND TWO PM
     Route: 048
     Dates: start: 20111017
  10. RESTORIL [Concomitant]
     Indication: INSOMNIA
     Route: 048
     Dates: start: 20100813
  11. SEROQUEL [Suspect]
     Route: 048
     Dates: start: 20100910
  12. SEROQUEL [Suspect]
     Route: 048
     Dates: start: 20110509
  13. SEROQUEL [Suspect]
     Route: 048
     Dates: start: 20111101
  14. LUVOX [Suspect]
     Route: 065
     Dates: start: 20110214
  15. SEROQUEL [Suspect]
     Indication: MOOD SWINGS
     Route: 048
     Dates: start: 20100106
  16. FLUVOXAMINE MALEATE [Concomitant]
     Dosage: 100 MG, TWICE A DAY AM AND TWO PM
     Route: 048
     Dates: start: 20110822
  17. WELLBUTRIN [Concomitant]
     Indication: DEPRESSION
     Route: 048
     Dates: start: 20091030
  18. WELLBUTRIN [Concomitant]
     Route: 048
     Dates: start: 20100813
  19. WELLBUTRIN [Concomitant]
     Route: 048
     Dates: start: 20111017
  20. TEMAZEPAM [Concomitant]
     Dates: start: 20091030
  21. SEROQUEL [Suspect]
     Route: 048
     Dates: start: 20110902
  22. LUVOX [Suspect]
     Route: 065
  23. CYMBALTA [Concomitant]
     Dates: start: 20091030
  24. SEROQUEL [Suspect]
     Route: 048
     Dates: start: 20111017
  25. TEGRETOL [Suspect]
     Indication: MOOD SWINGS
     Route: 065
     Dates: start: 20110824
  26. TEGRETOL [Suspect]
     Route: 065

REACTIONS (17)
  - SLEEP DISORDER [None]
  - ANXIETY DISORDER [None]
  - AFFECTIVE DISORDER [None]
  - OFF LABEL USE [None]
  - INSOMNIA [None]
  - ASTHENIA [None]
  - DISTURBANCE IN ATTENTION [None]
  - TOXICITY TO VARIOUS AGENTS [None]
  - DRUG DOSE OMISSION [None]
  - PSYCHOTIC DISORDER [None]
  - INITIAL INSOMNIA [None]
  - BIPOLAR I DISORDER [None]
  - OBSESSIVE-COMPULSIVE DISORDER [None]
  - ACTIVITIES OF DAILY LIVING IMPAIRED [None]
  - DEPRESSED MOOD [None]
  - SUICIDAL IDEATION [None]
  - MEMORY IMPAIRMENT [None]
